FAERS Safety Report 6809442-8 (Version None)
Quarter: 2010Q2

REPORT INFORMATION
  Report Type: 
  Country: None (occurrence: None)
  Receive Date: 20100625
  Receipt Date: 20100611
  Transmission Date: 20101027
  Serious: Yes (Death, Life-Threatening, Hospitalization)
  Sender: FDA-Public Use
  Company Number: 618823

PATIENT
  Age: 66 Year
  Sex: Male

DRUGS (21)
  1. CARBOPLATIN [Suspect]
     Indication: LUNG ADENOCARCINOMA
     Dosage: 413 MG MILLIGRAM(S), INTRAVENOUS
     Route: 042
     Dates: start: 20100216, end: 20100216
  2. (ALIMTA /01493902/) [Suspect]
     Indication: LUNG ADENOCARCINOMA
     Dosage: 842 MG MILLIGRAM(S), INTRAVENOUS
     Route: 042
     Dates: start: 20100216, end: 20100216
  3. (PRAXILENE) [Concomitant]
  4. PLAVIX [Concomitant]
  5. PRAVASTATIN SODIUM [Concomitant]
  6. VARENICLINE [Concomitant]
  7. (INEXIUM /01479302/) [Concomitant]
  8. (STILNOX /00914902/) [Concomitant]
  9. (PRIMPERAN /00041901/) [Concomitant]
  10. (SOLUPRED /00016209/) [Concomitant]
  11. (LASILIX /00032601/) [Concomitant]
  12. AMLODIPINE BESYLATE AND VALSARTAN [Concomitant]
  13. (DIAMICRON) [Concomitant]
  14. TERBUTALINE SULFATE [Concomitant]
  15. ATROVENT [Concomitant]
  16. PULMICORT [Concomitant]
  17. (SERETIDE /01420901/) [Concomitant]
  18. SPIRIVA [Concomitant]
  19. (VITAMIN B12 /00056201/) [Concomitant]
  20. (SPECIAFOLDINE) [Concomitant]
  21. (ZOPHREN /00955302/) [Concomitant]

REACTIONS (14)
  - ANURIA [None]
  - ASPERGILLOSIS [None]
  - ATRIAL FIBRILLATION [None]
  - BACTERIAL SEPSIS [None]
  - CUTANEOUS VASCULITIS [None]
  - DUODENITIS [None]
  - ENTERITIS [None]
  - ESCHERICHIA INFECTION [None]
  - LUNG DISORDER [None]
  - METABOLIC ACIDOSIS [None]
  - PANCYTOPENIA [None]
  - RENAL FAILURE ACUTE [None]
  - SEPTIC SHOCK [None]
  - TOXIC SKIN ERUPTION [None]
